FAERS Safety Report 23695854 (Version 1)
Quarter: 2024Q2

REPORT INFORMATION
  Report Type: Spontaneous
  Country: CN (occurrence: CN)
  Receive Date: 20240402
  Receipt Date: 20240402
  Transmission Date: 20240716
  Serious: Yes (Hospitalization, Other)
  Sender: FDA-Public Use
  Company Number: CN-BEIGENE-BGN-2024-004567

PATIENT

DRUGS (4)
  1. TISLELIZUMAB [Suspect]
     Active Substance: TISLELIZUMAB
     Indication: Oesophageal carcinoma
     Dosage: 20 MILLILITER
     Route: 041
     Dates: start: 20240105, end: 20240105
  2. VINORELBINE TARTRATE [Suspect]
     Active Substance: VINORELBINE TARTRATE
     Indication: Oesophageal carcinoma
     Dosage: 45 MILLIGRAM
     Route: 041
     Dates: start: 20240105, end: 20240105
  3. SODIUM CHLORIDE [Concomitant]
     Active Substance: SODIUM CHLORIDE
     Indication: Vehicle solution use
     Dosage: 50 MILLILITER
     Route: 041
     Dates: start: 20240105, end: 20240105
  4. SODIUM CHLORIDE [Concomitant]
     Active Substance: SODIUM CHLORIDE
     Dosage: 100 MILLILITER
     Route: 041
     Dates: start: 20240105, end: 20240105

REACTIONS (6)
  - White blood cell count decreased [Recovered/Resolved]
  - Neutrophil count decreased [Recovered/Resolved]
  - Sedation [Unknown]
  - Body temperature increased [Unknown]
  - Heart rate increased [Unknown]
  - Somnolence [Unknown]

NARRATIVE: CASE EVENT DATE: 20240108
